FAERS Safety Report 6358761-0 (Version None)
Quarter: 2009Q3

REPORT INFORMATION
  Report Type: 
  Country: None (occurrence: None)
  Receive Date: 20090916
  Receipt Date: 20090817
  Transmission Date: 20100115
  Serious: No
  Sender: FDA-Public Use
  Company Number: US-ABBOTT-09P-163-0592812-00

PATIENT
  Sex: Male
  Weight: 74.91 kg

DRUGS (3)
  1. TRILIPIX [Suspect]
     Indication: DYSLIPIDAEMIA
     Dosage: STOPPED FOR A COUPLE DAYS.
     Route: 048
     Dates: start: 20090601, end: 20090801
  2. TRILIPIX [Suspect]
     Route: 048
     Dates: start: 20090801
  3. LEVOTHYROXINE SODIUM [Concomitant]
     Indication: HYPOTHYROIDISM
     Route: 048

REACTIONS (3)
  - BLOOD CREATININE INCREASED [None]
  - DRUG DOSE OMISSION [None]
  - GLOMERULAR FILTRATION RATE DECREASED [None]
